FAERS Safety Report 6258161-8 (Version None)
Quarter: 2009Q3

REPORT INFORMATION
  Report Type: 
  Country: None (occurrence: None)
  Receive Date: 20090702
  Receipt Date: 20090618
  Transmission Date: 20100115
  Serious: Yes (Other)
  Sender: FDA-Public Use
  Company Number: 2009001850

PATIENT
  Sex: Male
  Weight: 72 kg

DRUGS (2)
  1. ERLOTINIB / PLACEBO [Suspect]
     Indication: NON-SMALL CELL LUNG CANCER
     Dosage: (150 MG, QD), ORAL
     Route: 048
     Dates: end: 20080116
  2. ERLOTINIB (ERLOTINIB HCL) (ERLOTINIB HCL) [Suspect]
     Dosage: (150 MG, QD), ORAL
     Route: 048
     Dates: start: 20080117, end: 20090515

REACTIONS (2)
  - TOOTH DISORDER [None]
  - TOOTHACHE [None]
